FAERS Safety Report 8144182-7 (Version None)
Quarter: 2012Q1

REPORT INFORMATION
  Report Type: 
  Country: None (occurrence: None)
  Receive Date: 20120217
  Receipt Date: 20120210
  Transmission Date: 20120608
  Serious: Yes (Other)
  Sender: FDA-Public Use
  Company Number: JP-JNJFOC-20120206290

PATIENT
  Sex: Male
  Weight: 80 kg

DRUGS (6)
  1. POTASSIUM CITRATE W/SODIUM CITRATE [Concomitant]
     Route: 048
     Dates: start: 20050101
  2. LIPIDIL [Concomitant]
     Dates: start: 20080101
  3. JANUVIA [Concomitant]
     Dates: start: 20110301
  4. STELARA [Suspect]
     Indication: PSORIASIS
     Route: 058
     Dates: start: 20110715, end: 20111118
  5. LIPITOR [Concomitant]
     Route: 048
     Dates: start: 20050101
  6. URINORM [Concomitant]
     Route: 048
     Dates: start: 20050101

REACTIONS (1)
  - GAMMA-GLUTAMYLTRANSFERASE INCREASED [None]
